FAERS Safety Report 8500443 (Version 2)
Quarter: 2013Q2

REPORT INFORMATION
  Report Type: Spontaneous
  Country: US (occurrence: None)
  Receive Date: 20120327
  Receipt Date: 20120709
  Transmission Date: 20140414
  Serious: Yes (Other)
  Sender: FDA-Public Use
  Company Number: PHHY2011US34180

PATIENT
  Age: 32 Year
  Sex: Male
  Weight: 85.2 kg

DRUGS (5)
  1. GLEEVEC [Suspect]
     Indication: CHRONIC MYELOID LEUKAEMIA
     Dosage: 400 MG DAILY, ORAL; 300 MG, DAILY, ORAL
     Route: 048
     Dates: start: 201103
  2. HYDROXYUREA [Concomitant]
  3. PREDNISONE [Concomitant]
  4. ALLOPURINOL [Concomitant]
  5. B COMPLEX (NICOTINAMIDE, PYRIDOXINE HYDROCHLORIDE, RIBOFLAVIN, THIAMINE HYDROCHLORIDE) [Concomitant]

REACTIONS (2)
  - THROMBOCYTOPENIA [None]
  - Diarrhoea [None]
